FAERS Safety Report 17800529 (Version 10)
Quarter: 2020Q2

REPORT INFORMATION
  Report Type: Report from Study
  Country: None (occurrence: SE)
  Receive Date: 20200519
  Receipt Date: 20200622
  Transmission Date: 20200714
  Serious: Yes (Death, Hospitalization, Other)
  Sender: FDA-Public Use
  Company Number: SE-ABBVIE-19S-150-2809402-00

PATIENT
  Age: 82 Year
  Sex: Female

DRUGS (29)
  1. DUODOPA [Suspect]
     Active Substance: CARBIDOPA\LEVODOPA
     Dosage: MD DECREASED TO 3.5 ML
     Route: 050
  2. DUODOPA [Suspect]
     Active Substance: CARBIDOPA\LEVODOPA
     Dosage: MORNING DOSE 5.5 ML. CONTINUOUS DOSE  2 ML/H. TWO EXTRA DOSE 1 ML.
     Route: 050
     Dates: start: 20200310, end: 202003
  3. DUODOPA [Suspect]
     Active Substance: CARBIDOPA\LEVODOPA
     Dosage: CURRENT DOSAGE:?MORNING DOSE: 6 ML?CONTINUOUS DOSE: 1.8 ML/H?EXTRA DOSE: 1.5 ML
     Route: 050
     Dates: start: 2020
  4. CANDESARTAN CILEXETIL. [Concomitant]
     Active Substance: CANDESARTAN CILEXETIL
     Indication: PRODUCT USED FOR UNKNOWN INDICATION
  5. DUODOPA [Suspect]
     Active Substance: CARBIDOPA\LEVODOPA
     Indication: PARKINSON^S DISEASE
     Dosage: 20 MG/ML 5 MG/ML
     Route: 050
     Dates: start: 20121111, end: 2012
  6. DUODOPA [Suspect]
     Active Substance: CARBIDOPA\LEVODOPA
     Dosage: CONTINUOUS DOSE DECREASED TO 1.8ML/H FROM 2 ML/H MORNING DOSE: 4ML
     Route: 050
     Dates: start: 20190626
  7. DUODOPA [Suspect]
     Active Substance: CARBIDOPA\LEVODOPA
     Dosage: CURRENT DOSAGE:?MORNING DOSE: 6 ML?CONTINUOUS DOSE: 1.8 ML/H?EXTRA DOSE: 1 ML
     Route: 050
     Dates: start: 20200421, end: 2020
  8. TROMBYL [Concomitant]
     Active Substance: ASPIRIN
     Indication: PRODUCT USED FOR UNKNOWN INDICATION
  9. CALCICHEW [Concomitant]
     Active Substance: CALCIUM CARBONATE
     Indication: PRODUCT USED FOR UNKNOWN INDICATION
  10. CARBAMAZEPINE. [Concomitant]
     Active Substance: CARBAMAZEPINE
     Indication: PRODUCT USED FOR UNKNOWN INDICATION
     Dates: start: 202006
  11. DUODOPA [Suspect]
     Active Substance: CARBIDOPA\LEVODOPA
     Dosage: MD 4.5 ML  CD 2.2 ML/H
     Route: 050
     Dates: start: 20121212, end: 2019
  12. BETOLVEX [Concomitant]
     Active Substance: CYANOCOBALAMIN
     Indication: PRODUCT USED FOR UNKNOWN INDICATION
  13. LEVETIRACETAM. [Concomitant]
     Active Substance: LEVETIRACETAM
     Indication: PRODUCT USED FOR UNKNOWN INDICATION
     Dates: end: 202006
  14. METOPROLOL. [Concomitant]
     Active Substance: METOPROLOL
     Indication: PRODUCT USED FOR UNKNOWN INDICATION
  15. FOLACIN [Concomitant]
     Indication: PRODUCT USED FOR UNKNOWN INDICATION
  16. DUODOPA [Suspect]
     Active Substance: CARBIDOPA\LEVODOPA
     Dosage: MORNING DOSE 7 ML CONTINUOUS DOSE 2.2 ML/H EXTRA DOSE 0.7 ML
     Route: 050
  17. XADAGO [Suspect]
     Active Substance: SAFINAMIDE MESYLATE
     Indication: PRODUCT USED FOR UNKNOWN INDICATION
     Route: 065
  18. KLEXANE [Concomitant]
     Active Substance: ENOXAPARIN
     Indication: PRODUCT USED FOR UNKNOWN INDICATION
     Dates: start: 20200611
  19. STESOLID [Concomitant]
     Active Substance: DIAZEPAM
     Indication: PRODUCT USED FOR UNKNOWN INDICATION
     Dosage: AS NEEDED
  20. DUODOPA [Suspect]
     Active Substance: CARBIDOPA\LEVODOPA
     Dosage: CURRENT DOSAGES:  MD 4 ML CD 2 ML/H ED 0.7 ML
     Route: 050
     Dates: start: 20190603, end: 201906
  21. LEVETIRACETAM. [Concomitant]
     Active Substance: LEVETIRACETAM
     Indication: PRODUCT USED FOR UNKNOWN INDICATION
  22. DUODOPA [Suspect]
     Active Substance: CARBIDOPA\LEVODOPA
     Dosage: CONTINUOUS DOSE INCREASED WITH 0.2 ML/H TO 2.2 ML/H.
     Route: 050
  23. DUODOPA [Suspect]
     Active Substance: CARBIDOPA\LEVODOPA
     Dosage: MORNING DOSE 5.5 ML. CONTINUOUS DOSE  1.8 ML/H. TWO EXTRA DOSE 1 ML.
     Route: 050
     Dates: start: 202003, end: 2020
  24. NEORECORMON [Concomitant]
     Active Substance: ERYTHROPOIETIN
     Indication: BLOOD DISORDER
  25. SIMVASTATIN. [Concomitant]
     Active Substance: SIMVASTATIN
     Indication: PRODUCT USED FOR UNKNOWN INDICATION
  26. MORPHINE [Concomitant]
     Active Substance: MORPHINE
     Indication: PRODUCT USED FOR UNKNOWN INDICATION
     Route: 058
  27. OXYCODONE [Concomitant]
     Active Substance: OXYCODONE
     Indication: PRODUCT USED FOR UNKNOWN INDICATION
     Dates: start: 202006
  28. XADAGO [Suspect]
     Active Substance: SAFINAMIDE MESYLATE
     Route: 065
     Dates: start: 20200507, end: 202005
  29. XARELTO [Concomitant]
     Active Substance: RIVAROXABAN
     Indication: PRODUCT USED FOR UNKNOWN INDICATION

REACTIONS (34)
  - Fall [Recovered/Resolved]
  - Toe walking [Not Recovered/Not Resolved]
  - Hypertension [Unknown]
  - Myocardial infarction [Unknown]
  - General physical health deterioration [Unknown]
  - Tremor [Unknown]
  - Fall [Unknown]
  - Freezing phenomenon [Not Recovered/Not Resolved]
  - Unevaluable event [Recovered/Resolved]
  - Unevaluable event [Unknown]
  - Head injury [Unknown]
  - Musculoskeletal stiffness [Not Recovered/Not Resolved]
  - Hyperkinesia [Recovered/Resolved]
  - Parkinson^s disease [Not Recovered/Not Resolved]
  - Fat tissue decreased [Unknown]
  - Fluid intake reduced [Unknown]
  - Unresponsive to stimuli [Not Recovered/Not Resolved]
  - Epilepsy [Not Recovered/Not Resolved]
  - Pulmonary embolism [Unknown]
  - Vomiting [Unknown]
  - Musculoskeletal stiffness [Recovered/Resolved]
  - Malnutrition [Unknown]
  - Hypophagia [Unknown]
  - Ageusia [Not Recovered/Not Resolved]
  - Weight decreased [Not Recovered/Not Resolved]
  - Asthenia [Unknown]
  - Death [Fatal]
  - Hypotension [Not Recovered/Not Resolved]
  - Pain [Not Recovered/Not Resolved]
  - Seizure [Unknown]
  - Syncope [Not Recovered/Not Resolved]
  - On and off phenomenon [Not Recovered/Not Resolved]
  - Hyperkinesia [Unknown]
  - Therapeutic product effect incomplete [Not Recovered/Not Resolved]

NARRATIVE: CASE EVENT DATE: 2019
